FAERS Safety Report 5158745-4 (Version None)
Quarter: 2006Q4

REPORT INFORMATION
  Report Type: 
  Country: None (occurrence: None)
  Receive Date: 20061116
  Receipt Date: 20061031
  Transmission Date: 20070319
  Serious: Yes (Hospitalization)
  Sender: FDA-Public Use
  Company Number: 8020156

PATIENT
  Sex: Female
  Weight: 39.7 kg

DRUGS (3)
  1. KEPPRA [Suspect]
     Indication: PARTIAL SEIZURES
     Dosage: PO
     Route: 048
     Dates: end: 20060801
  2. KEPPRA [Suspect]
     Indication: PARTIAL SEIZURES
     Dosage: 750 MG 2/D PO
     Route: 048
     Dates: start: 20060803, end: 20060101
  3. VALPROATE SODIUM [Concomitant]

REACTIONS (5)
  - DYSPHAGIA [None]
  - IMPULSIVE BEHAVIOUR [None]
  - MASKED FACIES [None]
  - PSYCHOMOTOR RETARDATION [None]
  - SALIVARY HYPERSECRETION [None]
